FAERS Safety Report 8241612-7 (Version None)
Quarter: 2012Q1

REPORT INFORMATION
  Report Type: 
  Country: None (occurrence: None)
  Receive Date: 20120328
  Receipt Date: 20120313
  Transmission Date: 20120608
  Serious: Yes (Hospitalization)
  Sender: FDA-Public Use
  Company Number: DK-ARROW GEN-2012-04807

PATIENT
  Sex: Male

DRUGS (2)
  1. LAMOTRIGINE [Suspect]
     Indication: DEPRESSION
     Dosage: UNK
     Route: 065
     Dates: start: 20120213, end: 20120305
  2. CYMBALTA [Concomitant]
     Indication: DEPRESSION
     Dosage: UNK
     Route: 065
     Dates: start: 20111110, end: 20120112

REACTIONS (5)
  - HYPERSENSITIVITY [None]
  - RASH [None]
  - LIP SWELLING [None]
  - PRURITUS [None]
  - PHARYNGEAL DISORDER [None]
